FAERS Safety Report 5084957-4 (Version None)
Quarter: 2006Q3

REPORT INFORMATION
  Report Type: 
  Country: None (occurrence: None)
  Receive Date: 20060821
  Receipt Date: 20060811
  Transmission Date: 20061208
  Serious: Yes (Hospitalization)
  Sender: FDA-Public Use
  Company Number: DE-ABBOTT-06P-062-0340267-00

PATIENT
  Sex: Female

DRUGS (2)
  1. ERGENYL CHRONO TABLETS [Suspect]
     Indication: EPILEPSY
     Route: 048
  2. ERGENYL CHRONO TABLETS [Suspect]
     Route: 048

REACTIONS (4)
  - AMNIOCENTESIS ABNORMAL [None]
  - BLOOD GLUCOSE INCREASED [None]
  - HYPERTENSION [None]
  - PRE-ECLAMPSIA [None]
